FAERS Safety Report 24062989 (Version 1)
Quarter: 2024Q3

REPORT INFORMATION
  Report Type: Other
  Country: CN (occurrence: CN)
  Receive Date: 20240709
  Receipt Date: 20240709
  Transmission Date: 20241017
  Serious: Yes (Other)
  Sender: Waylis
  Company Number: CN-WT-2024-38916435-P1

PATIENT
  Age: 18 Year
  Sex: Female

DRUGS (1)
  1. BUSULFAN [Suspect]
     Active Substance: BUSULFAN
     Indication: Chemotherapy
     Dosage: 0.8 MG/KG
     Route: 065

REACTIONS (1)
  - Neutropenia [Recovered/Resolved]
